FAERS Safety Report 5685149-8 (Version None)
Quarter: 2008Q1

REPORT INFORMATION
  Report Type: 
  Country: None (occurrence: None)
  Receive Date: 20080328
  Receipt Date: 20080310
  Transmission Date: 20080703
  Serious: No
  Sender: FDA-Public Use
  Company Number: US-PFIZER INC-2008022160

PATIENT
  Sex: Male
  Weight: 90.7 kg

DRUGS (5)
  1. DILANTIN [Suspect]
     Indication: CONVULSION
     Route: 048
  2. PHENYTOIN [Suspect]
     Indication: CONVULSION
  3. DIOVAN [Concomitant]
     Indication: HYPERTENSION
  4. ATENOLOL [Concomitant]
  5. ZARONTIN [Concomitant]
     Indication: CONVULSION

REACTIONS (16)
  - ABDOMINAL PAIN UPPER [None]
  - ANTICONVULSANT DRUG LEVEL INCREASED [None]
  - DECREASED ACTIVITY [None]
  - DECREASED APPETITE [None]
  - DIZZINESS [None]
  - DRUG INEFFECTIVE [None]
  - HEADACHE [None]
  - MALAISE [None]
  - NAUSEA [None]
  - NERVOUSNESS [None]
  - PALLOR [None]
  - RETCHING [None]
  - STOMACH DISCOMFORT [None]
  - TREMOR [None]
  - UNEVALUABLE EVENT [None]
  - WEIGHT DECREASED [None]
